FAERS Safety Report 9101011 (Version 1)
Quarter: 2013Q1

REPORT INFORMATION
  Report Type: Spontaneous
  Country: IT (occurrence: IT)
  Receive Date: 20130215
  Receipt Date: 20130215
  Transmission Date: 20140127
  Serious: Yes (Other)
  Sender: FDA-Public Use
  Company Number: IT-ROCHE-1191296

PATIENT
  Age: 57 Year
  Sex: Female
  Weight: 54 kg

DRUGS (6)
  1. ROACTEMRA [Suspect]
     Indication: RHEUMATOID ARTHRITIS
     Route: 042
     Dates: start: 20110912, end: 20121022
  2. REUMAFLEX [Concomitant]
     Route: 058
  3. BONVIVA [Concomitant]
     Route: 048
  4. DEFLAN [Concomitant]
     Route: 048
  5. ARAVA [Concomitant]
     Route: 048
  6. DIBASE [Concomitant]
     Route: 065

REACTIONS (1)
  - Invasive ductal breast carcinoma [Recovered/Resolved with Sequelae]
